FAERS Safety Report 5309968-2 (Version None)
Quarter: 2007Q2

REPORT INFORMATION
  Report Type: 
  Country: None (occurrence: None)
  Receive Date: 20070427
  Receipt Date: 20070419
  Transmission Date: 20071010
  Serious: Yes (Hospitalization)
  Sender: FDA-Public Use
  Company Number: 2007CG00644

PATIENT
  Age: 52 Year
  Sex: Female
  Weight: 43 kg

DRUGS (14)
  1. OMEPRAZOLE [Suspect]
     Route: 048
     Dates: start: 20070117, end: 20070204
  2. NEURONTIN [Suspect]
     Route: 048
     Dates: start: 20070131, end: 20070204
  3. COLCHIMAX [Suspect]
     Indication: ARTHRALGIA
     Route: 048
     Dates: start: 20070131, end: 20070204
  4. TELZIR [Concomitant]
  5. NORVIR [Concomitant]
  6. EPIVIR [Concomitant]
  7. ZIAGEN [Concomitant]
  8. LASIX [Concomitant]
  9. CALCIDIA [Concomitant]
  10. PRIMPERAN INJ [Concomitant]
  11. LANTUS [Concomitant]
  12. NOVORAPID [Concomitant]
  13. LEXOMIL [Concomitant]
  14. ZYRTEC [Concomitant]

REACTIONS (11)
  - ASTERIXIS [None]
  - BLOOD LACTIC ACID INCREASED [None]
  - BLOOD PH DECREASED [None]
  - BLOOD UREA INCREASED [None]
  - COMA [None]
  - DRUG TOXICITY [None]
  - ENCEPHALOPATHY [None]
  - GRAND MAL CONVULSION [None]
  - HYPERGLYCAEMIA [None]
  - HYPONATRAEMIA [None]
  - MYOCLONUS [None]
